FAERS Safety Report 17620616 (Version 2)
Quarter: 2020Q2

REPORT INFORMATION
  Report Type: Report from Study
  Country: US (occurrence: US)
  Receive Date: 20200403
  Receipt Date: 20200611
  Transmission Date: 20200713
  Serious: No
  Sender: FDA-Public Use
  Company Number: NVSC2020US084561

PATIENT
  Sex: Female

DRUGS (2)
  1. GILENYA [Suspect]
     Active Substance: FINGOLIMOD HYDROCHLORIDE
     Indication: MULTIPLE SCLEROSIS
     Dosage: 0.5 MG, QD
     Route: 048
  2. GILENYA [Suspect]
     Active Substance: FINGOLIMOD HYDROCHLORIDE
     Dosage: 0.5 MG, EVERY OTHER DAY
     Route: 048

REACTIONS (6)
  - Contusion [Recovered/Resolved]
  - Contusion [Not Recovered/Not Resolved]
  - Visual impairment [Unknown]
  - Skin discolouration [Not Recovered/Not Resolved]
  - Skin discolouration [Recovered/Resolved]
  - Alopecia [Recovering/Resolving]
